FAERS Safety Report 6386680-2 (Version None)
Quarter: 2009Q4

REPORT INFORMATION
  Report Type: 
  Country: None (occurrence: None)
  Receive Date: 20091002
  Receipt Date: 20090924
  Transmission Date: 20100525
  Serious: Yes (Life-Threatening, Hospitalization, Other)
  Sender: FDA-Public Use
  Company Number: JP-MERCK-0906USA03806

PATIENT
  Age: 78 Year
  Sex: Female
  Weight: 41 kg

DRUGS (24)
  1. FOSAMAX [Suspect]
     Indication: OSTEOPOROSIS
     Route: 048
     Dates: start: 20081014, end: 20090525
  2. TAKEPRON [Suspect]
     Indication: GASTRIC ULCER
     Route: 048
     Dates: start: 20081209, end: 20081201
  3. TAKEPRON [Suspect]
     Route: 048
     Dates: start: 20090201, end: 20090501
  4. TAKEPRON [Suspect]
     Route: 048
     Dates: start: 20081224, end: 20090201
  5. TAKEPRON [Suspect]
     Indication: REFLUX OESOPHAGITIS
     Route: 048
     Dates: start: 20081209, end: 20081201
  6. TAKEPRON [Suspect]
     Route: 048
     Dates: start: 20090201, end: 20090501
  7. TAKEPRON [Suspect]
     Route: 048
     Dates: start: 20081224, end: 20090201
  8. AMLODIPINE [Concomitant]
     Indication: HYPERTENSION
     Route: 048
     Dates: start: 20080425
  9. EVISTA [Suspect]
     Indication: OSTEOPOROSIS
     Route: 048
     Dates: start: 20080723, end: 20081014
  10. VOLTAREN [Suspect]
     Indication: BACK PAIN
     Route: 048
     Dates: end: 20081224
  11. MOHRUS [Concomitant]
     Indication: BACK PAIN
     Route: 061
     Dates: start: 20080701
  12. MOHRUS [Concomitant]
     Indication: OSTEOARTHRITIS
     Route: 061
     Dates: start: 20080701
  13. HIRUDOID [Concomitant]
     Indication: ASTEATOSIS
     Route: 061
     Dates: start: 20080801
  14. HYTHIOL [Concomitant]
     Indication: NASOPHARYNGITIS
     Route: 048
     Dates: start: 20080901, end: 20080901
  15. CINAL [Concomitant]
     Indication: NASOPHARYNGITIS
     Route: 048
     Dates: start: 20080901, end: 20080901
  16. DEQUALINIUM CHLORIDE [Concomitant]
     Indication: NASOPHARYNGITIS
     Route: 048
     Dates: start: 20080901
  17. KAKKON-TO [Concomitant]
     Indication: NASOPHARYNGITIS
     Route: 048
     Dates: start: 20081201, end: 20081201
  18. KAKKON-TO [Concomitant]
     Route: 048
     Dates: start: 20081001, end: 20081001
  19. KAKKON-TO [Concomitant]
     Route: 048
     Dates: start: 20090201, end: 20090201
  20. KAKKON-TO [Concomitant]
     Route: 048
     Dates: start: 20090501, end: 20090501
  21. KAKKON-TO [Concomitant]
     Route: 048
     Dates: start: 20081101, end: 20081101
  22. SELBEX [Concomitant]
     Indication: NASOPHARYNGITIS
     Route: 048
     Dates: start: 20081001, end: 20081201
  23. PROPETO [Concomitant]
     Route: 061
     Dates: start: 20081101
  24. MARZULENE-S [Concomitant]
     Route: 048
     Dates: start: 20081201, end: 20090101

REACTIONS (4)
  - GASTRIC ULCER [None]
  - MYELODYSPLASTIC SYNDROME [None]
  - NORMOCHROMIC NORMOCYTIC ANAEMIA [None]
  - SERUM FERRITIN INCREASED [None]
